FAERS Safety Report 22179178 (Version 1)
Quarter: 2023Q2

REPORT INFORMATION
  Report Type: Spontaneous
  Country: CA (occurrence: CA)
  Receive Date: 20230406
  Receipt Date: 20230406
  Transmission Date: 20230721
  Serious: Yes (Death, Disabling, Other)
  Sender: FDA-Public Use
  Company Number: CA-002147023-NVSC2023CA078474

PATIENT
  Age: 60 Year
  Sex: Male

DRUGS (26)
  1. QUETIAPINE FUMARATE [Suspect]
     Active Substance: QUETIAPINE FUMARATE
     Indication: Product used for unknown indication
     Dosage: UNK
     Route: 065
  2. QUETIAPINE FUMARATE [Suspect]
     Active Substance: QUETIAPINE FUMARATE
     Dosage: UNK
     Route: 065
  3. BENZTROPINE [Suspect]
     Active Substance: BENZTROPINE
     Indication: Bipolar disorder
     Dosage: UNK
     Route: 065
  4. BENZTROPINE [Suspect]
     Active Substance: BENZTROPINE
     Dosage: UNK
     Route: 065
  5. BENZTROPINE [Suspect]
     Active Substance: BENZTROPINE
     Dosage: UNK
     Route: 065
  6. BENZTROPINE [Suspect]
     Active Substance: BENZTROPINE
     Dosage: UNK
     Route: 065
  7. CHLORPROMAZINE [Suspect]
     Active Substance: CHLORPROMAZINE
     Indication: Bipolar disorder
     Dosage: 75 MG, TID (3 EVERY 1 DAYS)
     Route: 065
  8. CHLORPROMAZINE [Suspect]
     Active Substance: CHLORPROMAZINE
     Dosage: 75 MG, TID (3 EVERY 1 DAYS)
     Route: 065
  9. CHLORPROMAZINE [Suspect]
     Active Substance: CHLORPROMAZINE
     Dosage: 75 MG, TID (3 EVERY 1 DAYS)
     Route: 065
  10. CHLORPROMAZINE [Suspect]
     Active Substance: CHLORPROMAZINE
     Dosage: 75 MG, TID (3 EVERY 1 DAYS)
     Route: 065
  11. CHLORPROMAZINE [Suspect]
     Active Substance: CHLORPROMAZINE
     Dosage: 75 MG, TID (3 EVERY 1 DAYS)
     Route: 065
  12. CHLORPROMAZINE [Suspect]
     Active Substance: CHLORPROMAZINE
     Dosage: 75 MG, TID (3 EVERY 1 DAYS)
     Route: 065
  13. CHLORPROMAZINE [Suspect]
     Active Substance: CHLORPROMAZINE
     Dosage: 75 MG, TID (3 EVERY 1 DAYS)
     Route: 065
  14. CHLORPROMAZINE [Suspect]
     Active Substance: CHLORPROMAZINE
     Dosage: 75 MG, TID (3 EVERY 1 DAYS)
     Route: 065
  15. LITHIUM [Suspect]
     Active Substance: LITHIUM
     Indication: Bipolar disorder
     Dosage: 300 MG, TID (3 EVERY 1 DAYS)
     Route: 065
  16. LITHIUM [Suspect]
     Active Substance: LITHIUM
     Dosage: 300 MG, TID (3 EVERY 1 DAYS)
     Route: 065
  17. LITHIUM [Suspect]
     Active Substance: LITHIUM
     Dosage: 300 MG, TID (3 EVERY 1 DAYS)
     Route: 065
  18. LITHIUM [Suspect]
     Active Substance: LITHIUM
     Dosage: 300 MG, TID (3 EVERY 1 DAYS)
     Route: 065
  19. TRIHEXYPHENIDYL [Suspect]
     Active Substance: TRIHEXYPHENIDYL
     Indication: Parkinsonism
     Dosage: 2 MG, TID (3 EVERY 1 DAYS)
     Route: 065
  20. TRIHEXYPHENIDYL [Suspect]
     Active Substance: TRIHEXYPHENIDYL
     Dosage: 2 MG, TID (3 EVERY 1 DAYS)
     Route: 065
  21. TRIHEXYPHENIDYL [Suspect]
     Active Substance: TRIHEXYPHENIDYL
     Dosage: 2 MG, TID (3 EVERY 1 DAYS)
     Route: 065
  22. TRIHEXYPHENIDYL [Suspect]
     Active Substance: TRIHEXYPHENIDYL
     Dosage: 2 MG, TID (3 EVERY 1 DAYS)
     Route: 065
  23. TRIHEXYPHENIDYL [Suspect]
     Active Substance: TRIHEXYPHENIDYL
     Dosage: 2 MG, QID (4 EVERY 1 DAYS)
     Route: 065
  24. TRIHEXYPHENIDYL [Suspect]
     Active Substance: TRIHEXYPHENIDYL
     Dosage: 2 MG, QID (4 EVERY 1 DAYS)
     Route: 065
  25. TRIHEXYPHENIDYL [Suspect]
     Active Substance: TRIHEXYPHENIDYL
     Dosage: 2 MG, QID (4 EVERY 1 DAYS)
     Route: 065
  26. TRIHEXYPHENIDYL [Suspect]
     Active Substance: TRIHEXYPHENIDYL
     Dosage: 2 MG, QID (4 EVERY 1 DAYS)
     Route: 065

REACTIONS (8)
  - Cerebral amyloid angiopathy [Fatal]
  - Confusional state [Fatal]
  - Dementia Alzheimer^s type [Fatal]
  - Dyskinesia [Fatal]
  - Hallucination [Fatal]
  - Parkinsonism [Fatal]
  - Tardive dyskinesia [Fatal]
  - Unmasking of previously unidentified disease [Fatal]
